FAERS Safety Report 7525995-9 (Version None)
Quarter: 2011Q2

REPORT INFORMATION
  Report Type: 
  Country: None (occurrence: None)
  Receive Date: 20110606
  Receipt Date: 20110518
  Transmission Date: 20111010
  Serious: Yes (Other)
  Sender: FDA-Public Use
  Company Number: US-BAYER-200934381NA

PATIENT
  Sex: Female

DRUGS (6)
  1. TRASYLOL [Suspect]
     Indication: FISTULA REPAIR
  2. TRASYLOL [Suspect]
     Indication: PULMONARY ARTERY THERAPEUTIC PROCEDURE
  3. RED BLOOD CELLS [Concomitant]
     Dosage: UNK
     Dates: start: 20040513
  4. FRESH FROZEN PLASMA [Concomitant]
     Dosage: UNK
     Dates: start: 20040513
  5. TISSEEL KIT [Concomitant]
     Dosage: UNK
     Dates: start: 20040513
  6. TRASYLOL [Suspect]
     Indication: MITRAL VALVE REPLACEMENT
     Dosage: UNK
     Route: 042
     Dates: start: 20040513

REACTIONS (12)
  - FEAR [None]
  - ANHEDONIA [None]
  - UNEVALUABLE EVENT [None]
  - NERVOUSNESS [None]
  - INJURY [None]
  - EMOTIONAL DISTRESS [None]
  - PAIN [None]
  - MULTI-ORGAN FAILURE [None]
  - ANXIETY [None]
  - RENAL INJURY [None]
  - RENAL FAILURE [None]
  - DEPRESSION [None]
